FAERS Safety Report 24365584 (Version 1)
Quarter: 2024Q3

REPORT INFORMATION
  Report Type: Spontaneous
  Country: DE (occurrence: DE)
  Receive Date: 20240926
  Receipt Date: 20240926
  Transmission Date: 20241017
  Serious: Yes (Life-Threatening, Other)
  Sender: ORGANON
  Company Number: DE-Boehringer Ingelheim GmbH, Germany-2010-DE-07178DE

PATIENT
  Age: 43 Year
  Sex: Female
  Weight: 65 kg

DRUGS (7)
  1. MIRTAZAPINE [Suspect]
     Active Substance: MIRTAZAPINE
     Indication: Product used for unknown indication
     Dosage: 450 MILLIGRAM, ONCE
     Route: 048
  2. AMINOPHENAZONE\CODEINE PHOSPHATE\DIPHENHYDRAMINE HYDROCHLORIDE\MEPROBA [Suspect]
     Active Substance: AMINOPHENAZONE\CODEINE PHOSPHATE\DIPHENHYDRAMINE HYDROCHLORIDE\MEPROBAMATE\NIACIN
     Indication: Product used for unknown indication
     Dosage: UNK
  3. ALBUMIN TANNATE [Suspect]
     Active Substance: ALBUMIN TANNATE
     Indication: Product used for unknown indication
     Dosage: UNK
     Route: 048
  4. ALCOHOL [Suspect]
     Active Substance: ALCOHOL
     Indication: Product used for unknown indication
     Dosage: UNK
  5. CAFFEINE [Suspect]
     Active Substance: CAFFEINE
     Indication: Product used for unknown indication
     Dosage: 1600MG
     Route: 048
  6. BUTYLSCOPOLAMINE BROMIDE [Suspect]
     Active Substance: BUTYLSCOPOLAMINE BROMIDE
     Indication: Product used for unknown indication
     Dosage: 20 DOSAGE FORM, ONCE
     Route: 048
  7. ACETAMINOPHEN [Suspect]
     Active Substance: ACETAMINOPHEN
     Indication: Product used for unknown indication
     Dosage: 2000 MILLIGRAM, (ONCE)
     Route: 048

REACTIONS (3)
  - Suicide attempt [Unknown]
  - Intentional overdose [Unknown]
  - Coma [Unknown]

NARRATIVE: CASE EVENT DATE: 20101223
